FAERS Safety Report 4377581-X (Version None)
Quarter: 2004Q2

REPORT INFORMATION
  Report Type: 
  Country: None (occurrence: None)
  Receive Date: 20040608
  Receipt Date: 20040526
  Transmission Date: 20050107
  Serious: Yes (Congenital Anomaly)
  Sender: FDA-Public Use
  Company Number: 04P-056-0262260-00

PATIENT
  Sex: Male

DRUGS (1)
  1. DEPAKENE [Suspect]

REACTIONS (3)
  - CONGENITAL ANOMALY [None]
  - DRUG EXPOSURE DURING PREGNANCY [None]
  - EXPRESSIVE LANGUAGE DISORDER [None]
